FAERS Safety Report 20030888 (Version 1)
Quarter: 2021Q4

REPORT INFORMATION
  Report Type: Spontaneous
  Country: US (occurrence: US)
  Receive Date: 20211103
  Receipt Date: 20211103
  Transmission Date: 20220303
  Serious: No
  Sender: FDA-Public Use
  Company Number: US-SUNOVION-2021SUN004033

PATIENT
  Age: 62 Year
  Sex: Female

DRUGS (2)
  1. LONHALA MAGNAIR [Suspect]
     Active Substance: GLYCOPYRROLATE
     Dosage: 25 ?G, QD
     Route: 055
  2. LONHALA MAGNAIR [Suspect]
     Active Substance: GLYCOPYRROLATE
     Dosage: 25 ?G, BID
     Route: 055

REACTIONS (6)
  - Confusional state [Unknown]
  - Condition aggravated [Unknown]
  - Cough [Recovered/Resolved]
  - Dyspnoea [Unknown]
  - Product dose omission issue [Unknown]
  - Off label use [Unknown]
